FAERS Safety Report 8023585 (Version 4)
Quarter: 2020Q1

REPORT INFORMATION
  Report Type: Report from Study
  Country: US (occurrence: US)
  Receive Date: 20110706
  Receipt Date: 20200327
  Transmission Date: 20200409
  Serious: Yes (Hospitalization)
  Sender: FDA-Public Use
  Company Number: US-JNJFOC-20110613228

PATIENT
  Age: 71 Year
  Sex: Female
  Weight: 67.3 kg

DRUGS (17)
  1. AMMONIUM LACTATE. [Concomitant]
     Active Substance: AMMONIUM LACTATE
     Indication: DRY SKIN
     Route: 065
  2. CISAPRIDE [Suspect]
     Active Substance: CISAPRIDE
     Indication: IMPAIRED GASTRIC EMPTYING
     Route: 048
     Dates: start: 20010813
  3. CYCLOSPORINE. [Concomitant]
     Active Substance: CYCLOSPORINE
     Route: 047
  4. LIDOCAINE. [Concomitant]
     Active Substance: LIDOCAINE
     Dosage: AS NEEDED
     Route: 061
  5. ALL OTHER THERAPEUTIC PRODUCT [Concomitant]
     Active Substance: UNSPECIFIED INGREDIENT
     Route: 061
  6. CALCIUM AND VIT D [Concomitant]
     Active Substance: CALCIUM\VITAMIN D
     Indication: NUTRITIONAL SUPPLEMENTATION
     Route: 048
  7. CLONAZEPAM. [Concomitant]
     Active Substance: CLONAZEPAM
     Indication: DRUG THERAPY
     Dosage: 2 TAB AT BED TIME
     Route: 048
  8. LATANOPROST. [Concomitant]
     Active Substance: LATANOPROST
     Dosage: AT BED TIME
     Route: 047
  9. GRANISETRON [Concomitant]
     Active Substance: GRANISETRON
     Indication: NAUSEA
     Dosage: AS NEEDED
     Route: 048
  10. MULTIVITAMINS [Concomitant]
     Active Substance: VITAMINS
     Indication: HYPOVITAMINOSIS
     Dosage: CAPSULE/ TABLET
     Route: 065
  11. NITROGLYCERIN. [Concomitant]
     Active Substance: NITROGLYCERIN
     Route: 065
  12. TRIAMCINOLONE ACETONIDE. [Concomitant]
     Active Substance: TRIAMCINOLONE ACETONIDE
     Indication: RASH PRURITIC
     Route: 061
  13. ASA [Concomitant]
     Active Substance: ASPIRIN
     Route: 048
  14. LANSOPRAZOLE. [Concomitant]
     Active Substance: LANSOPRAZOLE
     Indication: ANTACID THERAPY
     Route: 048
  15. CARBOXYMETHYLCELLULOSE SODIUM. [Concomitant]
     Active Substance: CARBOXYMETHYLCELLULOSE SODIUM
     Indication: DRY EYE
     Route: 065
  16. LEVOTHYROXINE. [Concomitant]
     Active Substance: LEVOTHYROXINE
     Indication: THYROID DISORDER
     Dosage: ALTERNATE WITH 0.088 MG
     Route: 048
  17. ACETAMINOPHEN. [Concomitant]
     Active Substance: ACETAMINOPHEN
     Route: 048

REACTIONS (1)
  - Atrial fibrillation [Recovered/Resolved]

NARRATIVE: CASE EVENT DATE: 20110329
